FAERS Safety Report 7476382-3 (Version None)
Quarter: 2011Q2

REPORT INFORMATION
  Report Type: 
  Country: None (occurrence: None)
  Receive Date: 20110512
  Receipt Date: 20110502
  Transmission Date: 20111010
  Serious: Yes (Hospitalization)
  Sender: FDA-Public Use
  Company Number: B0676692A

PATIENT
  Sex: Male
  Weight: 80 kg

DRUGS (3)
  1. ARIXTRA [Suspect]
     Indication: THROMBOSIS PROPHYLAXIS
     Route: 058
     Dates: start: 20100331, end: 20100923
  2. ASPIRIN [Concomitant]
     Dosage: 160MG PER DAY
     Route: 048
     Dates: start: 20110312
  3. PREVISCAN [Suspect]
     Route: 048
     Dates: start: 20100809, end: 20100830

REACTIONS (5)
  - TRAUMATIC HAEMATOMA [None]
  - INCORRECT DRUG ADMINISTRATION DURATION [None]
  - HYPERTONIA [None]
  - OFF LABEL USE [None]
  - POST PROCEDURAL HAEMORRHAGE [None]
